FAERS Safety Report 17340855 (Version 1)
Quarter: 2020Q1

REPORT INFORMATION
  Report Type: Spontaneous
  Country: US (occurrence: US)
  Receive Date: 20200129
  Receipt Date: 20200129
  Transmission Date: 20200409
  Serious: No
  Sender: FDA-Public Use
  Company Number: US-ALLERGAN-1914835US

PATIENT
  Age: 43 Year
  Sex: Female
  Weight: 94.8 kg

DRUGS (1)
  1. BOTOX [Suspect]
     Active Substance: ONABOTULINUMTOXINA
     Indication: MIGRAINE
     Dosage: 155 UNITS, SINGLE
     Route: 030
     Dates: start: 20190327, end: 20190327

REACTIONS (4)
  - Hypertension [Unknown]
  - Hypoaesthesia [Unknown]
  - Eye pain [Unknown]
  - Therapeutic product effect incomplete [Unknown]
